FAERS Safety Report 4942653-5 (Version None)
Quarter: 2006Q1

REPORT INFORMATION
  Report Type: 
  Country: None (occurrence: None)
  Receive Date: 20060308
  Receipt Date: 20060301
  Transmission Date: 20060701
  Serious: Yes (Disabling)
  Sender: FDA-Public Use
  Company Number: 200610204BNE

PATIENT
  Sex: Female

DRUGS (1)
  1. ADALAT [Suspect]
     Indication: RAYNAUD'S PHENOMENON
     Dosage: 10 MG, TOTAL DAILY, ORAL
     Route: 048

REACTIONS (3)
  - BLOOD PRESSURE DECREASED [None]
  - CONVULSION [None]
  - SYNCOPE [None]
